FAERS Safety Report 8149760 (Version 2)
Quarter: 2014Q1

REPORT INFORMATION
  Report Type: Spontaneous
  Country: US (occurrence: US)
  Receive Date: 20110922
  Receipt Date: 20140103
  Transmission Date: 20141002
  Serious: No
  Sender: FDA-Public Use
  Company Number: US-ASTRAZENECA-2011SE42693

PATIENT
  Age: 83 Year
  Sex: Female
  Weight: 55.3 kg

DRUGS (4)
  1. SEROQUEL XR [Suspect]
     Indication: ANXIETY
     Dosage: 300MG TAB DAILY AND HALF OF A 150MG TAB DAILY
     Route: 048
  2. SEROQUEL XR [Suspect]
     Indication: DEPRESSION
     Dosage: 300MG TAB DAILY AND HALF OF A 150MG TAB DAILY
     Route: 048
  3. SEROQUEL XR [Suspect]
     Indication: SLEEP DISORDER
     Dosage: 300MG TAB DAILY AND HALF OF A 150MG TAB DAILY
     Route: 048
  4. LAMICTAL [Concomitant]
     Indication: PROPHYLAXIS
     Dosage: 1 PILL DAILY

REACTIONS (5)
  - Malaise [Unknown]
  - Calcinosis [Unknown]
  - Visual acuity reduced [Unknown]
  - Intentional drug misuse [Unknown]
  - Circumstance or information capable of leading to medication error [Unknown]
